FAERS Safety Report 12469559 (Version 3)
Quarter: 2017Q1

REPORT INFORMATION
  Report Type: Spontaneous
  Country: US (occurrence: US)
  Receive Date: 20160615
  Receipt Date: 20170109
  Transmission Date: 20170428
  Serious: No
  Sender: FDA-Public Use
  Company Number: GXBR2016US001585

PATIENT
  Age: 61 Year
  Sex: Female
  Weight: 83.9 kg

DRUGS (1)
  1. GLATOPA [Suspect]
     Active Substance: GLATIRAMER ACETATE
     Indication: MULTIPLE SCLEROSIS
     Dosage: 20 MG, QD
     Route: 065
     Dates: start: 20150720, end: 20150819

REACTIONS (16)
  - Muscle twitching [Recovered/Resolved]
  - Asthenia [Recovered/Resolved]
  - Irritability [Recovered/Resolved]
  - Drug ineffective [Recovered/Resolved]
  - Confusional state [Recovered/Resolved]
  - Balance disorder [Recovered/Resolved]
  - Gait disturbance [Recovered/Resolved]
  - Visual impairment [Recovered/Resolved]
  - Fatigue [Recovered/Resolved]
  - Multiple sclerosis relapse [Recovered/Resolved]
  - Muscle spasticity [Recovered/Resolved]
  - Depressed level of consciousness [Recovered/Resolved]
  - Muscular weakness [Recovered/Resolved]
  - Malaise [Recovered/Resolved]
  - Eye pain [Recovered/Resolved]
  - Dysarthria [Recovered/Resolved]

NARRATIVE: CASE EVENT DATE: 20150818
